FAERS Safety Report 9049558 (Version 1)
Quarter: 2013Q1

REPORT INFORMATION
  Report Type: Spontaneous
  Country: CO (occurrence: CO)
  Receive Date: 20130205
  Receipt Date: 20130205
  Transmission Date: 20140127
  Serious: Yes (Other)
  Sender: FDA-Public Use
  Company Number: CO-JNJFOC-20130114231

PATIENT
  Age: 35 Year
  Sex: Female

DRUGS (5)
  1. SIMPONI [Suspect]
     Indication: RHEUMATOID ARTHRITIS
     Route: 058
     Dates: start: 20121002
  2. SIMPONI [Suspect]
     Indication: RHEUMATOID ARTHRITIS
     Route: 058
     Dates: start: 20130102
  3. NAPROXEN [Concomitant]
     Route: 048
  4. PREDNISOLONE [Concomitant]
     Route: 048
  5. OMEPRAZOLE [Concomitant]
     Route: 065

REACTIONS (2)
  - Vaginal infection [Recovered/Resolved]
  - Pruritus [Unknown]
